FAERS Safety Report 6785410-X (Version None)
Quarter: 2010Q2

REPORT INFORMATION
  Report Type: 
  Country: None (occurrence: None)
  Receive Date: 20100623
  Receipt Date: 20100614
  Transmission Date: 20101027
  Serious: No
  Sender: FDA-Public Use
  Company Number: US-BIOGENIDEC-2010BI020313

PATIENT
  Age: 58 Year
  Sex: Female

DRUGS (3)
  1. TYSABRI [Suspect]
     Indication: MULTIPLE SCLEROSIS
     Route: 042
     Dates: start: 20080611, end: 20081229
  2. TYSABRI [Suspect]
     Route: 042
     Dates: start: 20100108
  3. ALEVE (CAPLET) [Concomitant]
     Indication: ARTHRITIS

REACTIONS (3)
  - ANXIETY [None]
  - ARTHRITIS [None]
  - VISION BLURRED [None]
